FAERS Safety Report 4527039-X (Version None)
Quarter: 2004Q4

REPORT INFORMATION
  Report Type: 
  Country: None (occurrence: None)
  Receive Date: 20041129
  Receipt Date: 20040426
  Transmission Date: 20050328
  Serious: Yes (Death)
  Sender: FDA-Public Use
  Company Number: USA040465901

PATIENT
  Age: 78 Year
  Sex: Female

DRUGS (7)
  1. ZYPREXA [Suspect]
     Indication: CATATONIA
     Dosage: 15 MG/1 DAY
     Dates: start: 20021101, end: 20040408
  2. BEXTRA [Concomitant]
  3. NORVASC [Concomitant]
  4. LASIX [Concomitant]
  5. ARICEPT [Concomitant]
  6. ALTACE (RAMIPRIL) [Concomitant]
  7. MULTIVITAMIN [Concomitant]

REACTIONS (3)
  - DEATH [None]
  - DRUG INEFFECTIVE [None]
  - MIDDLE INSOMNIA [None]
